FAERS Safety Report 10667753 (Version 2)
Quarter: 2014Q4

REPORT INFORMATION
  Report Type: Report from Study
  Country: FR (occurrence: FR)
  Receive Date: 20141222
  Receipt Date: 20141222
  Transmission Date: 20150529
  Serious: Yes (Life-Threatening, Other)
  Sender: FDA-Public Use
  Company Number: FR-ASTRAZENECA-2014SE34773

PATIENT
  Age: 312 Month
  Sex: Female
  Weight: 77 kg

DRUGS (3)
  1. ABILIFY [Concomitant]
     Active Substance: ARIPIPRAZOLE
     Route: 048
     Dates: start: 20131220
  2. XEROQUEL [Suspect]
     Active Substance: QUETIAPINE FUMARATE
     Indication: SCHIZOPHRENIA
     Route: 048
     Dates: start: 20131024, end: 20140721
  3. RISPERDAL CONSTAT [Concomitant]
     Dosage: INJECTABLE, 37.5 MG TWICE MONTHLY
     Dates: start: 20110815, end: 20131024

REACTIONS (4)
  - Delusion [Recovered/Resolved]
  - Hypersomnia [Recovered/Resolved]
  - Drug ineffective [Unknown]
  - Weight increased [Recovered/Resolved]

NARRATIVE: CASE EVENT DATE: 20131030
